FAERS Safety Report 8788679 (Version 1)
Quarter: 2012Q4

REPORT INFORMATION
  Report Type: Report from Study
  Country: UG (occurrence: UG)
  Receive Date: 20120915
  Receipt Date: 20120915
  Transmission Date: 20130627
  Serious: Yes (Hospitalization)
  Sender: FDA-Public Use
  Company Number: UG-ABBOTT-12P-165-0975859-00

PATIENT
  Age: 57 Year
  Sex: Male

DRUGS (6)
  1. ALUVIA [Suspect]
     Indication: HIV INFECTION
     Route: 048
     Dates: start: 20101109
  2. LASIX [Concomitant]
     Indication: PRODUCT USED FOR UNKNOWN INDICATION
     Dates: start: 20120522, end: 20120611
  3. BENDROFLUAZIDE [Concomitant]
     Indication: PRODUCT USED FOR UNKNOWN INDICATION
     Dates: start: 20120522, end: 20120611
  4. SEPTRIN [Concomitant]
     Indication: PRODUCT USED FOR UNKNOWN INDICATION
     Dates: start: 20101109
  5. TENOFOVIR [Concomitant]
     Indication: HIV INFECTION
     Dates: start: 20101109
  6. LAMIVUDINE [Concomitant]
     Indication: HIV INFECTION
     Dates: start: 20101109

REACTIONS (2)
  - Gouty arthritis [Recovered/Resolved]
  - Malignant hypertension [Recovered/Resolved]
